FAERS Safety Report 8259802-6 (Version None)
Quarter: 2012Q2

REPORT INFORMATION
  Report Type: 
  Country: None (occurrence: None)
  Receive Date: 20120404
  Receipt Date: 20120323
  Transmission Date: 20120825
  Serious: Yes (Death)
  Sender: FDA-Public Use
  Company Number: NL-BAXTER-2012BH003928

PATIENT
  Sex: Female

DRUGS (3)
  1. EXTRANEAL [Suspect]
     Route: 033
  2. PHYSIONEAL 40 GLUCOSE 3.86% W/V / 38.6 MG/ML CLEAR-FLEX, OPLOSSING VOO [Suspect]
     Route: 033
  3. PHYSIONEAL 40 GLUCOSE 2.27% W/V / 22.7 MG/ML CLEAR-FLEX, OPLOSSING VOO [Suspect]
     Route: 033

REACTIONS (1)
  - CARDIAC FAILURE CHRONIC [None]
